FAERS Safety Report 25404832 (Version 1)
Quarter: 2025Q2

REPORT INFORMATION
  Report Type: Report from Study
  Country: US (occurrence: US)
  Receive Date: 20250606
  Receipt Date: 20250606
  Transmission Date: 20250717
  Serious: No
  Sender: ACADIA PHARMACEUTICALS
  Company Number: US-ACADIA PHARMACEUTICALS INC.-ACA-2025-PIM-006687

PATIENT
  Sex: Female

DRUGS (6)
  1. NUPLAZID [Suspect]
     Active Substance: PIMAVANSERIN TARTRATE
     Indication: Parkinson^s disease psychosis
     Dosage: 34 MILLIGRAM, QD
     Route: 048
     Dates: start: 20241116
  2. DEXAMETHASONE [Concomitant]
     Active Substance: DEXAMETHASONE
  3. HYDROXYZINE HYDROCHLORIDE [Concomitant]
     Active Substance: HYDROXYZINE HYDROCHLORIDE
  4. RALOXIFENE [Concomitant]
     Active Substance: RALOXIFENE
  5. RIVASTIGMINE [Concomitant]
     Active Substance: RIVASTIGMINE
  6. VENOFER [Concomitant]
     Active Substance: IRON SUCROSE

REACTIONS (1)
  - Mood altered [Unknown]
